FAERS Safety Report 7933110-2 (Version None)
Quarter: 2011Q4

REPORT INFORMATION
  Report Type: 
  Country: None (occurrence: None)
  Receive Date: 20111122
  Receipt Date: 20111117
  Transmission Date: 20120403
  Serious: Yes (Life-Threatening, Hospitalization)
  Sender: FDA-Public Use
  Company Number: PHHY2011EC101906

PATIENT
  Sex: Female

DRUGS (4)
  1. ZOLEDRONOC ACID [Suspect]
     Dosage: 5 MG, 5MG/100ML 1 APPLICATION YEARLY
     Route: 042
     Dates: start: 20090101
  2. ZOLEDRONOC ACID [Suspect]
     Dosage: 5 MG, 5MG/100ML 1 APPLICATION YEARLY
     Route: 042
     Dates: start: 20080101
  3. ZOLEDRONOC ACID [Suspect]
     Dosage: 5 MG, 5MG/100ML 1 APPLICATION YEARLY
     Route: 042
     Dates: start: 20101101
  4. ZOLEDRONOC ACID [Suspect]
     Indication: OSTEOPOROSIS
     Dosage: 5 MG, 5MG/100ML 1 APPLICATION YEARLY
     Route: 042
     Dates: start: 20070101

REACTIONS (4)
  - HERNIA [None]
  - ABDOMINAL DISTENSION [None]
  - ASCITES [None]
  - LIVER DISORDER [None]
